FAERS Safety Report 5836318-5 (Version None)
Quarter: 2008Q3

REPORT INFORMATION
  Report Type: 
  Country: None (occurrence: None)
  Receive Date: 20080807
  Receipt Date: 20080728
  Transmission Date: 20090109
  Serious: Yes (Death, Hospitalization)
  Sender: FDA-Public Use
  Company Number: JP-JNJFOC-20080505516

PATIENT
  Sex: Male

DRUGS (10)
  1. PREZISTA [Suspect]
     Route: 048
  2. PREZISTA [Suspect]
     Indication: HIV INFECTION
     Route: 048
  3. NORVIR [Concomitant]
     Indication: HIV INFECTION
     Route: 048
  4. DIFLUCAN [Concomitant]
     Indication: INFECTION PROPHYLAXIS
  5. COTRIM [Concomitant]
     Indication: PROPHYLAXIS
     Route: 048
  6. PHELLOBERIN [Concomitant]
     Indication: DIARRHOEA
     Route: 048
  7. PRIMPERAN TAB [Concomitant]
     Indication: NAUSEA
     Route: 048
  8. LOPERAMIDE HCL [Concomitant]
     Indication: DIARRHOEA
     Route: 048
  9. ASPARA K [Concomitant]
     Route: 048
  10. ASPARA K [Concomitant]
     Indication: HYPOKALAEMIA
     Route: 048

REACTIONS (3)
  - DIARRHOEA [None]
  - INTERSTITIAL LUNG DISEASE [None]
  - NAUSEA [None]
